FAERS Safety Report 24604370 (Version 2)
Quarter: 2024Q4

REPORT INFORMATION
  Report Type: Report from Study
  Country: US (occurrence: US)
  Receive Date: 20241111
  Receipt Date: 20241120
  Transmission Date: 20250115
  Serious: Yes (Other)
  Sender: LUNDBECK
  Company Number: US-LUNDBECK-DKLU4006332

PATIENT

DRUGS (21)
  1. VYEPTI [Suspect]
     Active Substance: EPTINEZUMAB-JJMR
     Indication: Migraine
     Dosage: 300 MILLIGRAM
     Route: 041
     Dates: start: 20230606
  2. VYEPTI [Suspect]
     Active Substance: EPTINEZUMAB-JJMR
     Indication: Migraine without aura
  3. BOTOX [Concomitant]
     Active Substance: ONABOTULINUMTOXINA
     Indication: Product used for unknown indication
  4. MIRENA ESS-STEEM [Concomitant]
     Indication: Product used for unknown indication
  5. VITAMINS [Concomitant]
     Active Substance: VITAMINS
     Indication: Product used for unknown indication
  6. NARATRIPTAN [Concomitant]
     Active Substance: NARATRIPTAN HYDROCHLORIDE
     Indication: Product used for unknown indication
     Dosage: 1 DOSAGE FORM
  7. NURTEC ODT [Concomitant]
     Active Substance: RIMEGEPANT SULFATE
     Indication: Product used for unknown indication
  8. OMEGA-3 FATTY ACIDS [Concomitant]
     Active Substance: OMEGA-3 FATTY ACIDS
     Indication: Product used for unknown indication
  9. VITAMIN D2 [Concomitant]
     Active Substance: ERGOCALCIFEROL
     Indication: Product used for unknown indication
  10. ONDANSETRON [Concomitant]
     Active Substance: ONDANSETRON
     Indication: Nausea
     Dosage: 1 DOSAGE FORM
     Route: 048
  11. ZYRTEC [Concomitant]
     Active Substance: CETIRIZINE HYDROCHLORIDE
     Indication: Product used for unknown indication
  12. BUPROPION [Concomitant]
     Active Substance: BUPROPION
     Indication: Product used for unknown indication
     Dosage: 1 DOSAGE FORM
     Route: 048
  13. CLONAZEPAM [Concomitant]
     Active Substance: CLONAZEPAM
     Indication: Product used for unknown indication
  14. DILTIAZEM [Concomitant]
     Active Substance: DILTIAZEM
     Indication: Product used for unknown indication
     Dosage: 1 DOSAGE FORM
     Route: 048
  15. LINZESS [Concomitant]
     Active Substance: LINACLOTIDE
     Indication: Product used for unknown indication
  16. METOPROLOL SUCCINATE [Concomitant]
     Active Substance: METOPROLOL SUCCINATE
     Indication: Product used for unknown indication
     Dosage: 1 DOSAGE FORM
     Route: 048
  17. METHOCARBAMOL [Concomitant]
     Active Substance: METHOCARBAMOL
     Indication: Product used for unknown indication
     Dosage: 1 DOSAGE FORM
     Route: 048
  18. ALVESCO [Concomitant]
     Active Substance: CICLESONIDE
     Indication: Product used for unknown indication
  19. HYOSCYAMINE SULFATE [Concomitant]
     Active Substance: HYOSCYAMINE SULFATE
     Indication: Product used for unknown indication
     Dosage: 1 DOSAGE FORM
     Route: 048
  20. PROAIR HFA [Concomitant]
     Active Substance: ALBUTEROL SULFATE
     Indication: Product used for unknown indication
  21. KETOROLAC TROMETHAMINE [Concomitant]
     Active Substance: KETOROLAC TROMETHAMINE
     Indication: Pain
     Dosage: 1 MILLILITRE

REACTIONS (1)
  - Rheumatoid arthritis [Unknown]
